FAERS Safety Report 10213378 (Version 1)
Quarter: 2014Q2

REPORT INFORMATION
  Report Type: Spontaneous
  Country: DK (occurrence: DK)
  Receive Date: 20140603
  Receipt Date: 20140603
  Transmission Date: 20141212
  Serious: Yes (Hospitalization)
  Sender: FDA-Public Use
  Company Number: DK-JNJFOC-20140516106

PATIENT
  Sex: Female
  Weight: 60 kg

DRUGS (16)
  1. SERENASE [Suspect]
     Indication: MENTAL DISORDER
     Route: 048
     Dates: start: 20120921
  2. PENOMAX [Suspect]
     Indication: INFECTION
     Route: 048
     Dates: start: 20130306, end: 20130309
  3. CARDIOSTAT (OMEGA-3 FATTY ACIDS) [Suspect]
     Indication: HYPERTENSION
     Route: 048
     Dates: start: 20120925
  4. LACTULOSE [Suspect]
     Indication: CONSTIPATION
     Dosage: 667NG/ML
     Route: 048
     Dates: start: 20130302
  5. ACETYLSALICYLSYRE [Suspect]
     Indication: THROMBOSIS PROPHYLAXIS
     Route: 048
     Dates: start: 20120921
  6. OXABENZ [Suspect]
     Indication: RESTLESSNESS
     Dosage: 15 MG
     Route: 048
     Dates: start: 20130302
  7. NITROFURANTOIN [Suspect]
     Indication: PROPHYLAXIS URINARY TRACT INFECTION
     Route: 048
     Dates: start: 20120921
  8. PERSANTIN RETARD [Suspect]
     Indication: THROMBOSIS PROPHYLAXIS
     Route: 048
     Dates: start: 20120921
  9. PINEX JUNIOR [Suspect]
     Indication: PAIN
     Route: 048
     Dates: start: 20130302
  10. PANTOPRAZOLE [Suspect]
     Indication: GASTROOESOPHAGEAL REFLUX DISEASE
     Route: 048
     Dates: start: 20130302
  11. SIMVASTATIN [Suspect]
     Indication: CARDIOVASCULAR DISORDER
     Route: 048
     Dates: start: 20120921
  12. ABILIFY [Suspect]
     Indication: SCHIZOPHRENIA
     Route: 048
     Dates: start: 20130217, end: 20130317
  13. ELTROXIN [Suspect]
     Indication: MYXOEDEMA
     Route: 048
     Dates: start: 20120921
  14. IMOCLONE [Concomitant]
     Indication: INSOMNIA
     Route: 065
     Dates: start: 20120224
  15. MULTIVITAMINS [Concomitant]
     Indication: VITAMIN SUPPLEMENTATION
     Route: 065
     Dates: start: 20130121
  16. TRADOLAN [Concomitant]
     Indication: PAIN
     Route: 048
     Dates: start: 20130303

REACTIONS (4)
  - Cerebral thrombosis [Not Recovered/Not Resolved]
  - Pneumonia [Not Recovered/Not Resolved]
  - Strawberry tongue [Not Recovered/Not Resolved]
  - Constipation [Not Recovered/Not Resolved]
